FAERS Safety Report 7242733-8 (Version None)
Quarter: 2011Q1

REPORT INFORMATION
  Report Type: 
  Country: None (occurrence: None)
  Receive Date: 20110114
  Receipt Date: 20110107
  Transmission Date: 20110831
  Serious: Yes (Hospitalization, Other)
  Sender: FDA-Public Use
  Company Number: WAES 1008USA00507

PATIENT
  Age: 4 Year
  Sex: Female

DRUGS (10)
  1. LAMIVUDINE [Concomitant]
  2. ABACAVIR SULFATE [Concomitant]
  3. BACTRIM [Concomitant]
  4. VITAMINS (UNSPECIFIED) [Concomitant]
  5. EFAVIRENZ [Suspect]
     Indication: PRODUCT USED FOR UNKNOWN INDICATION
     Dosage: 250 MG/HS, PO, 200 MG/DAILY, PO
     Route: 048
     Dates: start: 20100714
  6. EFAVIRENZ [Suspect]
     Indication: PRODUCT USED FOR UNKNOWN INDICATION
     Dosage: 250 MG/HS, PO, 200 MG/DAILY, PO
     Route: 048
     Dates: start: 20101124
  7. DIDANOSINE [Concomitant]
  8. TENOFOVIR DISOPROXIL FUMARATE [Concomitant]
  9. ISENTRESS [Suspect]
     Indication: HIV INFECTION
     Dosage: 100 MG/BID, PO
     Route: 048
     Dates: start: 20100714
  10. FOLIC ACID [Concomitant]

REACTIONS (23)
  - ALANINE AMINOTRANSFERASE INCREASED [None]
  - MALAISE [None]
  - LOBAR PNEUMONIA [None]
  - RASH PRURITIC [None]
  - ADENOVIRUS INFECTION [None]
  - ASPARTATE AMINOTRANSFERASE INCREASED [None]
  - LYMPHADENOPATHY [None]
  - LACTIC ACIDOSIS [None]
  - FATIGUE [None]
  - RASH MACULO-PAPULAR [None]
  - WEIGHT DECREASED [None]
  - COUGH [None]
  - HEPATITIS [None]
  - GAMMA-GLUTAMYLTRANSFERASE INCREASED [None]
  - VIRAL RASH [None]
  - MEASLES [None]
  - RUBELLA [None]
  - SPLENOMEGALY [None]
  - BLOOD BILIRUBIN INCREASED [None]
  - HEPATOMEGALY [None]
  - DERMATITIS ALLERGIC [None]
  - TACHYPNOEA [None]
  - PULMONARY TUBERCULOSIS [None]
